FAERS Safety Report 5822806-4 (Version None)
Quarter: 2008Q3

REPORT INFORMATION
  Report Type: 
  Country: None (occurrence: None)
  Receive Date: 20080718
  Receipt Date: 20080506
  Transmission Date: 20090109
  Serious: Yes (Life-Threatening)
  Sender: FDA-Public Use
  Company Number: 2008PV000038

PATIENT
  Age: 42 Year
  Sex: Male
  Weight: 111.1313 kg

DRUGS (3)
  1. DEPODUR [Suspect]
     Indication: PROCEDURAL PAIN
     Dosage: 10 MG;X1;ED
     Route: 008
     Dates: start: 20070502, end: 20070502
  2. IBUPROFEN [Concomitant]
  3. EXCEDRIN /00391201/ [Concomitant]

REACTIONS (1)
  - HYPOTENSION [None]
